FAERS Safety Report 8296179-4 (Version None)
Quarter: 2012Q2

REPORT INFORMATION
  Report Type: 
  Country: None (occurrence: None)
  Receive Date: 20120418
  Receipt Date: 20120411
  Transmission Date: 20120825
  Serious: Yes (Hospitalization, Other)
  Sender: FDA-Public Use
  Company Number: BR-ABBOTT-12P-020-0924967-00

PATIENT
  Sex: Female
  Weight: 63 kg

DRUGS (5)
  1. HUMIRA [Suspect]
     Indication: RHEUMATOID ARTHRITIS
     Route: 058
     Dates: start: 20111020, end: 20120216
  2. DIPYRONE TAB [Concomitant]
     Indication: HEADACHE
     Route: 048
  3. OMEPRAZOLE [Concomitant]
     Indication: ABDOMINAL PAIN UPPER
     Route: 048
  4. ARAVA [Concomitant]
     Indication: RHEUMATOID ARTHRITIS
     Route: 048
     Dates: end: 20120216
  5. ACETAMINOPHEN [Concomitant]
     Indication: HEADACHE
     Route: 048

REACTIONS (9)
  - ARTICULAR CALCIFICATION [None]
  - INJECTION SITE ERYTHEMA [None]
  - BURNING SENSATION [None]
  - INJECTION SITE URTICARIA [None]
  - WEIGHT DECREASED [None]
  - ARTHRALGIA [None]
  - INJECTION SITE PRURITUS [None]
  - POST PROCEDURAL OEDEMA [None]
  - ASTHENIA [None]
